FAERS Safety Report 17297484 (Version 1)
Quarter: 2020Q1

REPORT INFORMATION
  Report Type: Spontaneous
  Country: FR (occurrence: FR)
  Receive Date: 20200122
  Receipt Date: 20200122
  Transmission Date: 20200409
  Serious: Yes (Death, Life-Threatening, Hospitalization)
  Sender: FDA-Public Use
  Company Number: FR-TEVA-2020-FR-1172288

PATIENT
  Age: 7 Year
  Sex: Female

DRUGS (7)
  1. BASILIXIMAB [Suspect]
     Active Substance: BASILIXIMAB
     Indication: IMMUNOSUPPRESSANT DRUG THERAPY
     Dosage: ON DAYS 1 AND 4
     Route: 065
  2. MYCOPHENOLATE MOFETIL. [Suspect]
     Active Substance: MYCOPHENOLATE MOFETIL
     Indication: IMMUNOSUPPRESSANT DRUG THERAPY
     Route: 065
  3. VORICONAZOLE. [Suspect]
     Active Substance: VORICONAZOLE
     Indication: BRONCHOPULMONARY ASPERGILLOSIS
     Route: 065
  4. CASPOFUNGINE [Suspect]
     Active Substance: CASPOFUNGIN
     Indication: BRONCHOPULMONARY ASPERGILLOSIS
     Route: 065
  5. METHYLPREDNISOLONE. [Suspect]
     Active Substance: METHYLPREDNISOLONE
     Indication: IMMUNOSUPPRESSANT DRUG THERAPY
     Route: 065
  6. TACROLIMUS. [Suspect]
     Active Substance: TACROLIMUS
     Indication: IMMUNOSUPPRESSANT DRUG THERAPY
     Route: 065
  7. INTERFERON GAMMA NOS [Suspect]
     Active Substance: INTERFERON GAMMA
     Indication: IMMUNOMODULATORY THERAPY
     Route: 058

REACTIONS (8)
  - Bronchopulmonary aspergillosis [Fatal]
  - Off label use [Unknown]
  - Cerebral haemorrhage [Recovering/Resolving]
  - Acute respiratory distress syndrome [Recovering/Resolving]
  - Drug ineffective [Unknown]
  - Cerebral aspergillosis [Recovering/Resolving]
  - Shock haemorrhagic [Fatal]
  - Respiratory failure [Recovered/Resolved]
